FAERS Safety Report 6509592-X (Version None)
Quarter: 2009Q4

REPORT INFORMATION
  Report Type: 
  Country: None (occurrence: None)
  Receive Date: 20091222
  Receipt Date: 20091211
  Transmission Date: 20100525
  Serious: Yes (Hospitalization, Other)
  Sender: FDA-Public Use
  Company Number: US-ROCHE-656728

PATIENT
  Sex: Female

DRUGS (4)
  1. PEGASYS [Suspect]
     Indication: HEPATITIS C
     Dosage: FORM: PRE-FILLED SYNRINGES
     Route: 065
     Dates: start: 20090904, end: 20091126
  2. RIBAVIRIN [Suspect]
     Indication: HEPATITIS C
     Dosage: 1200 MG DAILY IN DIVIDED DOSES
     Route: 065
     Dates: start: 20090904, end: 20091126
  3. PROZAC [Concomitant]
  4. PROZAC [Concomitant]

REACTIONS (13)
  - ABDOMINAL DISCOMFORT [None]
  - AGITATION [None]
  - ASTHENIA [None]
  - BLOOD URIC ACID INCREASED [None]
  - CHOLELITHIASIS [None]
  - CLOSTRIDIAL INFECTION [None]
  - DIABETES MELLITUS [None]
  - FEAR [None]
  - INFLUENZA LIKE ILLNESS [None]
  - NAUSEA [None]
  - NERVOUSNESS [None]
  - PANCREATITIS [None]
  - TREMOR [None]
